FAERS Safety Report 12525533 (Version 2)
Quarter: 2016Q3

REPORT INFORMATION
  Report Type: Spontaneous
  Country: JP (occurrence: JP)
  Receive Date: 20160705
  Receipt Date: 20160722
  Transmission Date: 20161109
  Serious: Yes (Hospitalization, Other)
  Sender: FDA-Public Use
  Company Number: JP-AMGEN-JPNSP2016086740

PATIENT
  Age: 7 Decade
  Sex: Male

DRUGS (5)
  1. ELPLAT [Suspect]
     Active Substance: OXALIPLATIN
     Indication: COLON CANCER
     Dosage: UNK UNK, Q2WEEKS
     Route: 041
     Dates: start: 20160520, end: 20160603
  2. 5-FU                               /00098801/ [Concomitant]
     Active Substance: FLUOROURACIL
     Indication: COLON CANCER
     Dosage: UNK UNK, Q2WEEKS
     Route: 042
     Dates: start: 20160520, end: 20160603
  3. MINOMYCIN [Suspect]
     Active Substance: MINOCYCLINE HYDROCHLORIDE
     Indication: DERMATITIS ACNEIFORM
     Dosage: UNK
     Route: 048
     Dates: start: 20160603, end: 20160617
  4. LEUCOVORIN                         /00566702/ [Concomitant]
     Active Substance: LEUCOVORIN
     Indication: COLON CANCER
     Dosage: UNK UNK, Q2WEEKS
     Route: 041
     Dates: start: 20160520, end: 20160603
  5. VECTIBIX [Suspect]
     Active Substance: PANITUMUMAB
     Indication: COLON CANCER
     Dosage: 6 MG/KG, Q2WEEKS
     Route: 041
     Dates: start: 20160520, end: 20160603

REACTIONS (3)
  - Dermatitis acneiform [Recovered/Resolved]
  - Stomatitis [Recovered/Resolved]
  - Erythema multiforme [Recovering/Resolving]

NARRATIVE: CASE EVENT DATE: 201606
